FAERS Safety Report 4618178-3 (Version None)
Quarter: 2005Q1

REPORT INFORMATION
  Report Type: 
  Country: None (occurrence: None)
  Receive Date: 20050323
  Receipt Date: 20050310
  Transmission Date: 20050727
  Serious: Yes (Death)
  Sender: FDA-Public Use
  Company Number: IE-2005-003702

PATIENT
  Sex: 0

DRUGS (1)
  1. CAMPATH [Suspect]

REACTIONS (1)
  - ACUTE MYOCARDIAL INFARCTION [None]
